FAERS Safety Report 6928071-9 (Version None)
Quarter: 2010Q3

REPORT INFORMATION
  Report Type: 
  Country: None (occurrence: None)
  Receive Date: 20100812
  Receipt Date: 20100803
  Transmission Date: 20110219
  Serious: Yes (Other)
  Sender: FDA-Public Use
  Company Number: A-US2010-38740

PATIENT
  Age: 78 Year
  Sex: Female

DRUGS (1)
  1. TRACLEER [Suspect]
     Indication: PULMONARY ARTERIAL HYPERTENSION
     Dosage: ORAL
     Route: 048
     Dates: start: 20100201

REACTIONS (4)
  - LIVER DISORDER [None]
  - LIVER SCAN ABNORMAL [None]
  - LOWER RESPIRATORY TRACT INFECTION [None]
  - OFF LABEL USE [None]
